FAERS Safety Report 21413238 (Version 3)
Quarter: 2022Q4

REPORT INFORMATION
  Report Type: Report from Study
  Country: US (occurrence: US)
  Receive Date: 20221006
  Receipt Date: 20221222
  Transmission Date: 20230113
  Serious: Yes (Other)
  Sender: FDA-Public Use
  Company Number: US-ABBVIE-22K-163-4493642-00

PATIENT
  Age: 65 Year
  Sex: Female

DRUGS (3)
  1. HUMIRA [Suspect]
     Active Substance: ADALIMUMAB
     Indication: Psoriatic arthropathy
     Dosage: CITRATE FREE
     Route: 058
  2. HUMIRA [Suspect]
     Active Substance: ADALIMUMAB
     Indication: Rheumatoid arthritis
     Dosage: CITRATE FREE
     Route: 058
  3. HUMIRA [Suspect]
     Active Substance: ADALIMUMAB
     Indication: Ankylosing spondylitis

REACTIONS (13)
  - Cataract [Not Recovered/Not Resolved]
  - Back pain [Not Recovered/Not Resolved]
  - Uveitis [Recovered/Resolved]
  - Pain [Not Recovered/Not Resolved]
  - Incontinence [Recovered/Resolved]
  - Sciatica [Not Recovered/Not Resolved]
  - Therapeutic product effect incomplete [Unknown]
  - Injection site haemorrhage [Recovered/Resolved]
  - Wrong technique in product usage process [Unknown]
  - Injection site haemorrhage [Unknown]
  - Rash pruritic [Not Recovered/Not Resolved]
  - Uveitis [Not Recovered/Not Resolved]
  - Injection site laceration [Unknown]

NARRATIVE: CASE EVENT DATE: 20220701
